FAERS Safety Report 7020644-0 (Version None)
Quarter: 2010Q3

REPORT INFORMATION
  Report Type: 
  Country: None (occurrence: None)
  Receive Date: 20100929
  Receipt Date: 20100920
  Transmission Date: 20110219
  Serious: Yes (Other)
  Sender: FDA-Public Use
  Company Number: B0676553A

PATIENT

DRUGS (1)
  1. ASMOL (SALBUTAMOL SULFATE) [Suspect]
     Indication: ASTHMA
     Route: 065

REACTIONS (2)
  - ASTHMA [None]
  - PRODUCT QUALITY ISSUE [None]
